FAERS Safety Report 7864902 (Version 4)
Quarter: 2014Q1

REPORT INFORMATION
  Report Type: Report from Study
  Country: US (occurrence: US)
  Receive Date: 20110321
  Receipt Date: 20140325
  Transmission Date: 20141002
  Serious: Yes (Hospitalization)
  Sender: FDA-Public Use
  Company Number: US-ALEXION-A201100346

PATIENT
  Age: 35 Year
  Sex: Female

DRUGS (18)
  1. SOLIRIS [Suspect]
     Indication: PAROXYSMAL NOCTURNAL HAEMOGLOBINURIA
     Dosage: 600 MG, QW
     Route: 042
     Dates: start: 20110103
  2. SOLIRIS [Suspect]
     Dosage: 900 MG, Q2W
     Route: 042
     Dates: end: 20110308
  3. BENTYL [Concomitant]
     Dosage: UNK
  4. ESTRACE [Concomitant]
     Dosage: UNK
  5. SYNTHROID [Concomitant]
     Dosage: UNK
  6. KLONOPIN [Concomitant]
     Dosage: UNK
  7. FOLIC ACID [Concomitant]
     Dosage: UNK
  8. DRISDOL [Concomitant]
     Dosage: UNK
  9. VITAMIN E [Concomitant]
     Dosage: UNK
  10. PRISTIQ [Concomitant]
     Dosage: UNK
  11. CLARITIN [Concomitant]
     Dosage: UNK
  12. VALTREX [Concomitant]
     Dosage: UNK
  13. ATIVAN [Concomitant]
     Dosage: UNK
  14. VITAMIN B12 [Concomitant]
     Dosage: UNK
  15. FISH OIL [Concomitant]
     Dosage: UNK
  16. ESTRING [Concomitant]
     Dosage: UNK
  17. VICODIN [Concomitant]
     Dosage: UNK
  18. COLAZAL [Concomitant]
     Dosage: UNK

REACTIONS (9)
  - Pleural effusion [Unknown]
  - Dyspnoea [Unknown]
  - Chest pain [Unknown]
  - Urinary retention [Unknown]
  - Pulmonary embolism [Unknown]
  - Ventricular extrasystoles [Unknown]
  - Platelet count decreased [Not Recovered/Not Resolved]
  - Pyrexia [Recovered/Resolved]
  - Fatigue [Recovering/Resolving]
